FAERS Safety Report 20520785 (Version 2)
Quarter: 2022Q1

REPORT INFORMATION
  Report Type: Spontaneous
  Country: CN (occurrence: CN)
  Receive Date: 20220225
  Receipt Date: 20220301
  Transmission Date: 20220423
  Serious: Yes (Other)
  Sender: FDA-Public Use
  Company Number: CN-PFIZER INC-202200285109

PATIENT
  Age: 3 Year
  Sex: Male

DRUGS (23)
  1. METHYLPREDNISOLONE SODIUM SUCCINATE [Suspect]
     Active Substance: METHYLPREDNISOLONE SODIUM SUCCINATE
     Indication: Drug reaction with eosinophilia and systemic symptoms
     Dosage: 10 MG/(KG*D), 1 DAY OF PULSE THERAPY
     Dates: start: 20190518, end: 20190518
  2. METHYLPREDNISOLONE SODIUM SUCCINATE [Suspect]
     Active Substance: METHYLPREDNISOLONE SODIUM SUCCINATE
     Dosage: 3 DAYS OF PULSE THERAPY
     Dates: start: 20190519, end: 20190521
  3. METHYLPREDNISOLONE SODIUM SUCCINATE [Suspect]
     Active Substance: METHYLPREDNISOLONE SODIUM SUCCINATE
     Dosage: DOSE OF THE HORMONE BEGAN TO BE REDUCED
     Dates: start: 20190522
  4. METHYLPREDNISOLONE SODIUM SUCCINATE [Suspect]
     Active Substance: METHYLPREDNISOLONE SODIUM SUCCINATE
     Dosage: DOSE OF HORMONE WAS INCREASED AGAIN FOR PULSE THERAPY
     Dates: start: 20190525
  5. METHYLPREDNISOLONE SODIUM SUCCINATE [Suspect]
     Active Substance: METHYLPREDNISOLONE SODIUM SUCCINATE
     Dosage: HORMONE DOSE WAS GRADUALLY REDUCED
     Dates: start: 20190527
  6. IBUPROFEN [Concomitant]
     Active Substance: IBUPROFEN
     Indication: Pyrexia
     Dosage: 4 ML, 4-5 TIMES A DAY
     Route: 048
     Dates: start: 20190504
  7. IBUPROFEN [Concomitant]
     Active Substance: IBUPROFEN
     Dosage: UNK
     Route: 048
     Dates: start: 20190508
  8. IBUPROFEN [Concomitant]
     Active Substance: IBUPROFEN
     Dosage: UNK
     Route: 048
     Dates: start: 20190517
  9. MEZLOCILLIN SODIUM\SULBACTAM SODIUM [Concomitant]
     Active Substance: MEZLOCILLIN SODIUM\SULBACTAM SODIUM
     Indication: Infection
     Dosage: UNK
     Route: 042
     Dates: start: 20190505, end: 20190507
  10. MEZLOCILLIN SODIUM\SULBACTAM SODIUM [Concomitant]
     Active Substance: MEZLOCILLIN SODIUM\SULBACTAM SODIUM
     Dosage: 0.78 G, 3X/DAY
     Dates: start: 20190508
  11. CEFOTAXIME SODIUM [Concomitant]
     Active Substance: CEFOTAXIME SODIUM
     Indication: Infection
     Dosage: 0.5 G, 3X/DAY
     Dates: start: 20190512, end: 20190514
  12. AZITHROMYCIN [Concomitant]
     Active Substance: AZITHROMYCIN
     Indication: Infection
     Dosage: 0.15 G, 1X/DAY
     Route: 048
     Dates: start: 20190514, end: 20190517
  13. PHOLCODINE [Concomitant]
     Active Substance: PHOLCODINE
     Indication: Cough
     Dosage: UNK
     Route: 048
     Dates: start: 20190514
  14. LORATADINE [Concomitant]
     Active Substance: LORATADINE
     Indication: Drug eruption
     Dosage: 5 ML, 1X/DAY
     Dates: start: 20190514
  15. CALAMINE LOTION [Concomitant]
     Active Substance: CALAMINE LOTION
     Dosage: UNK
     Route: 061
     Dates: start: 20190514
  16. HYDROCORTISONE SODIUM SUCCINATE [Concomitant]
     Active Substance: HYDROCORTISONE SODIUM SUCCINATE
     Dosage: 80 MG, 2X/DAY
     Route: 042
     Dates: start: 20190514
  17. HYDROCORTISONE SODIUM SUCCINATE [Concomitant]
     Active Substance: HYDROCORTISONE SODIUM SUCCINATE
     Dosage: UNK
     Route: 042
     Dates: start: 20190517
  18. VITAMIN C [Concomitant]
     Active Substance: ASCORBIC ACID
     Dosage: 1 DF, 1X/DAY
     Dates: start: 20190514
  19. CILASTATIN SODIUM\IMIPENEM [Concomitant]
     Active Substance: CILASTATIN SODIUM\IMIPENEM
     Indication: Infection
     Dosage: 0.31 G, 3X/DAY
     Route: 042
     Dates: start: 20190517, end: 20190517
  20. IMMUNE GLOBULIN NOS [Concomitant]
     Active Substance: IMMUNE GLOBULIN NOS
     Indication: Drug reaction with eosinophilia and systemic symptoms
     Dosage: 1 G/(KG*D), 1 DAY OF PULSE THERAPY
     Dates: start: 20190518, end: 20190518
  21. GLYCYRRHIZIN [Concomitant]
     Active Substance: GLYCYRRHIZIN
     Indication: Hepatic function abnormal
     Dosage: UNK
     Dates: start: 20190519
  22. GLYCYRRHIZIN [Concomitant]
     Active Substance: GLYCYRRHIZIN
     Dosage: UNK
     Dates: start: 20190527
  23. METHYLPREDNISOLONE [Concomitant]
     Active Substance: METHYLPREDNISOLONE
     Dosage: UNK
     Route: 048
     Dates: start: 20190527

REACTIONS (2)
  - Human herpesvirus 6 infection reactivation [Recovered/Resolved]
  - Rash [Recovered/Resolved]

NARRATIVE: CASE EVENT DATE: 20190501
